APPROVED DRUG PRODUCT: LEVOCARNITINE
Active Ingredient: LEVOCARNITINE
Strength: 1GM/10ML
Dosage Form/Route: SOLUTION;ORAL
Application: A076851 | Product #001 | TE Code: AA
Applicant: RISING PHARMA HOLDINGS INC
Approved: Aug 10, 2004 | RLD: No | RS: No | Type: RX